FAERS Safety Report 8846570 (Version 1)
Quarter: 2012Q4

REPORT INFORMATION
  Report Type: 
  Country: US (occurrence: US)
  Receive Date: 20121017
  Receipt Date: 20121017
  Transmission Date: 20130627
  Serious: No
  Sender: FDA-Public Use
  Company Number: US-BAYER-2012-106965

PATIENT
  Age: 53 Year
  Sex: Female
  Weight: 85.71 kg

DRUGS (8)
  1. ALEVE CAPLET/TABLET,MIDOL EXTENDED RELIEF CAPLET [Suspect]
     Indication: ANALGESIC THERAPY
     Dosage: 1 DF
     Route: 048
     Dates: start: 201111
  2. ONE A DAY WOMEN^S 50+ HEALTHY ADVANTAGE [Concomitant]
  3. SIMVASTATIN [Concomitant]
  4. LEVOTHYROXINE [Concomitant]
  5. ALLERGY SHOT [Concomitant]
  6. GENERIC FORM OF CLARITIN D [Concomitant]
  7. MUCINEX [Concomitant]
  8. CRANBERRY SUPPLEMENT [Concomitant]

REACTIONS (1)
  - Blood pressure increased [Unknown]
